FAERS Safety Report 7586510-7 (Version None)
Quarter: 2011Q2

REPORT INFORMATION
  Report Type: 
  Country: None (occurrence: None)
  Receive Date: 20110603
  Receipt Date: 20110418
  Transmission Date: 20111010
  Serious: No
  Sender: FDA-Public Use
  Company Number: 2011SP017545

PATIENT
  Age: 28 Year
  Sex: Female

DRUGS (5)
  1. KLONOPIN [Concomitant]
  2. AMBIEN [Concomitant]
  3. REMERON [Concomitant]
  4. SAPHRIS [Suspect]
     Indication: BIPOLAR DISORDER
     Dosage: 5MG; 10 MG
     Dates: start: 20101001, end: 20101001
  5. SAPHRIS [Suspect]
     Indication: BIPOLAR DISORDER
     Dosage: 5MG; 10 MG
     Dates: start: 20101001

REACTIONS (2)
  - TONGUE BLISTERING [None]
  - THERAPEUTIC PRODUCT INEFFECTIVE [None]
